FAERS Safety Report 7419440-1 (Version None)
Quarter: 2011Q2

REPORT INFORMATION
  Report Type: 
  Country: None (occurrence: None)
  Receive Date: 20110418
  Receipt Date: 20110408
  Transmission Date: 20111010
  Serious: Yes (Other)
  Sender: FDA-Public Use
  Company Number: DK-AMGEN-DNKCT2011019500

PATIENT
  Age: 69 Year
  Sex: Female

DRUGS (5)
  1. SALAZOPYRIN [Concomitant]
     Dosage: UNK
     Dates: start: 20090318
  2. HUMIRA [Suspect]
     Indication: RHEUMATOID ARTHRITIS
     Dosage: 40 MG, WEEKLY
     Dates: start: 20100331
  3. METHOTREXATE [Concomitant]
     Dosage: UNK
     Route: 048
     Dates: start: 20090318
  4. PREDNISOLONE [Concomitant]
     Dosage: UNK
     Dates: start: 20090318
  5. ETANERCEPT [Suspect]
     Indication: RHEUMATOID ARTHRITIS
     Dosage: 50 MG, QWK
     Dates: start: 20090318

REACTIONS (1)
  - METASTASES TO LIVER [None]
